FAERS Safety Report 4998572-1 (Version None)
Quarter: 2006Q2

REPORT INFORMATION
  Report Type: 
  Country: None (occurrence: None)
  Receive Date: 20060508
  Receipt Date: 20060426
  Transmission Date: 20061013
  Serious: Yes (Life-Threatening, Hospitalization)
  Sender: FDA-Public Use
  Company Number: HQWYE578030JAN06

PATIENT
  Age: 66 Year
  Sex: Male

DRUGS (10)
  1. MYLOTARG [Suspect]
     Indication: ACUTE MYELOID LEUKAEMIA
     Dosage: 9 MG/M^2 1X PER 1 DAY INTRAVENOUS DRIP
     Route: 041
     Dates: start: 20051221, end: 20051221
  2. MYLOTARG [Suspect]
     Indication: ACUTE MYELOID LEUKAEMIA
     Dosage: 9 MG/M^2 1X PER 1 DAY INTRAVENOUS DRIP
     Route: 041
     Dates: start: 20060110, end: 20060110
  3. CARBENIN (BETAMIPRON/PANIPENEM) [Suspect]
     Indication: SINUSITIS
     Dosage: 2 G DAY INTRAVENOUS DRIP
     Route: 041
     Dates: start: 20051216, end: 20051222
  4. CRAVIT (LEVLFLOXACIN) [Suspect]
     Indication: SINUSITIS
     Dosage: 300 MG/DAY ORAL
     Route: 048
     Dates: start: 20051215
  5. VANCOMYCIN HYDROCHLORIDE [Suspect]
     Indication: SINUSITIS
     Dosage: 2 G/DAY INTRAVENOUS DRIP
     Route: 041
     Dates: start: 20051012
  6. VFEND [Suspect]
     Indication: SINUSITIS
     Dosage: 480 MG/DAY INTRAVENOUS DRIP
     Route: 041
     Dates: start: 20051202
  7. ZANTAC [Concomitant]
  8. MUCOSTA (REBAMIPIDE) [Concomitant]
  9. URSO 250 [Concomitant]
  10. MAGNESIUM OXIDE (MAGNESIUM OXIDE) [Concomitant]

REACTIONS (11)
  - ASPARTATE AMINOTRANSFERASE INCREASED [None]
  - BLOOD LACTATE DEHYDROGENASE INCREASED [None]
  - C-REACTIVE PROTEIN INCREASED [None]
  - DISSEMINATED INTRAVASCULAR COAGULATION [None]
  - FIBRIN D DIMER INCREASED [None]
  - GAMMA-GLUTAMYLTRANSFERASE INCREASED [None]
  - HAEMOGLOBIN DECREASED [None]
  - HYPOALBUMINAEMIA [None]
  - NEUTROPHIL COUNT DECREASED [None]
  - PLATELET COUNT DECREASED [None]
  - WHITE BLOOD CELL COUNT DECREASED [None]
